FAERS Safety Report 25141715 (Version 1)
Quarter: 2025Q1

REPORT INFORMATION
  Report Type: Spontaneous
  Country: CH (occurrence: CH)
  Receive Date: 20250331
  Receipt Date: 20250331
  Transmission Date: 20250409
  Serious: Yes (Death, Hospitalization, Other)
  Sender: TEVA
  Company Number: CH-TEVA-VS-3315100

PATIENT
  Age: 76 Year
  Sex: Female

DRUGS (4)
  1. LEFLUNOMIDE [Suspect]
     Active Substance: LEFLUNOMIDE
     Indication: Seronegative arthritis
     Route: 065
     Dates: start: 201911, end: 202109
  2. METHOTREXATE [Suspect]
     Active Substance: METHOTREXATE
     Indication: Rheumatoid arthritis
     Route: 065
     Dates: start: 201911
  3. ADALIMUMAB [Suspect]
     Active Substance: ADALIMUMAB
     Indication: Seronegative arthritis
     Route: 065
     Dates: start: 202309
  4. ADALIMUMAB [Suspect]
     Active Substance: ADALIMUMAB
     Indication: Seronegative arthritis
     Route: 065
     Dates: start: 202109, end: 202308

REACTIONS (4)
  - Disseminated tuberculosis [Fatal]
  - Drug ineffective [Fatal]
  - Bovine tuberculosis [Fatal]
  - Tuberculosis [Fatal]

NARRATIVE: CASE EVENT DATE: 20210101
